FAERS Safety Report 9557314 (Version 1)
Quarter: 2013Q3

REPORT INFORMATION
  Report Type: Report from Study
  Country: CA (occurrence: CA)
  Receive Date: 20130926
  Receipt Date: 20130926
  Transmission Date: 20140515
  Serious: Yes (Other)
  Sender: FDA-Public Use
  Company Number: CA-JNJFOC-20130912302

PATIENT
  Age: 49 Year
  Sex: Female
  Weight: 74.7 kg

DRUGS (5)
  1. REMICADE [Suspect]
     Indication: CROHN^S DISEASE
     Route: 042
     Dates: start: 201204
  2. PANTOLOC [Concomitant]
     Route: 065
  3. CITALOPRAM [Concomitant]
     Route: 065
  4. MULTIVITAMINES [Concomitant]
     Route: 065
  5. UNSPECIFIED HERBAL SUPPLEMENTS [Concomitant]
     Route: 065

REACTIONS (2)
  - Intestinal resection [Unknown]
  - Incisional hernia [Unknown]
